FAERS Safety Report 24065861 (Version 1)
Quarter: 2024Q3

REPORT INFORMATION
  Report Type: Report from Study
  Country: CA (occurrence: CA)
  Receive Date: 20240709
  Receipt Date: 20240709
  Transmission Date: 20241017
  Serious: Yes (Other)
  Sender: BIOCON
  Company Number: CA-BIOCON BIOLOGICS LIMITED-BBL2024004893

PATIENT

DRUGS (1)
  1. HULIO [Suspect]
     Active Substance: ADALIMUMAB-FKJP
     Indication: Uveitis
     Dosage: 40 MILLIGRAM, BIWEEKLY
     Route: 058

REACTIONS (3)
  - Uveitis [Unknown]
  - Product substitution issue [Unknown]
  - Injection site pain [Unknown]
